FAERS Safety Report 6404712-X (Version None)
Quarter: 2009Q4

REPORT INFORMATION
  Report Type: 
  Country: None (occurrence: None)
  Receive Date: 20091016
  Receipt Date: 20091009
  Transmission Date: 20100525
  Serious: Yes (Hospitalization)
  Sender: FDA-Public Use
  Company Number: US-JNJFOC-20091000352

PATIENT
  Age: 10 Month
  Sex: Male
  Weight: 8.16 kg

DRUGS (2)
  1. TYLENOL (CAPLET) [Suspect]
     Route: 048
  2. TYLENOL (CAPLET) [Suspect]
     Indication: TEETHING
     Dosage: 80 MG 1-2 TIMES A DAY
     Route: 048

REACTIONS (5)
  - ABNORMAL BEHAVIOUR [None]
  - BACTERIAL INFECTION [None]
  - PAIN [None]
  - POOR QUALITY SLEEP [None]
  - TRANSMISSION OF AN INFECTIOUS AGENT VIA A MEDICINAL PRODUCT [None]
